FAERS Safety Report 7751970-5 (Version None)
Quarter: 2011Q3

REPORT INFORMATION
  Report Type: 
  Country: None (occurrence: None)
  Receive Date: 20110915
  Receipt Date: 20110905
  Transmission Date: 20111222
  Serious: Yes (Other)
  Sender: FDA-Public Use
  Company Number: GB-UCBSA-040161

PATIENT
  Sex: Female
  Weight: 94 kg

DRUGS (3)
  1. KEPPRA [Suspect]
     Route: 048
     Dates: start: 20110308
  2. VIMPAT [Suspect]
     Indication: EPILEPSY
     Dosage: 2 X 200MG
     Route: 048
     Dates: start: 20091218
  3. KEPPRA [Suspect]
     Indication: EPILEPSY
     Route: 048
     Dates: start: 20100812, end: 20110308

REACTIONS (7)
  - AGGRESSION [None]
  - FEELING ABNORMAL [None]
  - CONVULSION [None]
  - MOROSE [None]
  - DRUG LEVEL INCREASED [None]
  - IRRITABILITY [None]
  - DRUG INEFFECTIVE [None]
